FAERS Safety Report 20311258 (Version 1)
Quarter: 2022Q1

REPORT INFORMATION
  Report Type: Spontaneous
  Country: DE (occurrence: DE)
  Receive Date: 20220107
  Receipt Date: 20220107
  Transmission Date: 20220423
  Serious: Yes (Other)
  Sender: FDA-Public Use
  Company Number: DE-TEVA-2021-DE-1995305

PATIENT
  Age: 62 Year
  Sex: Male
  Weight: 128 kg

DRUGS (10)
  1. PREGABALIN [Suspect]
     Active Substance: PREGABALIN
     Dosage: 4 DOSAGE FORMS DAILY; 4 TABLETS DAILY
     Dates: start: 201712
  2. METAMIZOLE [Suspect]
     Active Substance: METAMIZOLE
     Dosage: 4 DOSAGE FORMS DAILY; 4 TABLETS DAILY
     Dates: start: 201512
  3. RAMIPRIL [Suspect]
     Active Substance: RAMIPRIL
     Dosage: 2 DOSAGE FORMS DAILY; 2 TABLETS DAILY
     Dates: start: 201712
  4. TRAMADOL [Suspect]
     Active Substance: TRAMADOL
     Dosage: 1 TABLET AS REQUIRED
     Dates: start: 201512
  5. Ass-ratiopharm 100mg TAH [Concomitant]
     Dosage: ONE TABLET DAILY
     Dates: start: 201512
  6. Atorvastatin AL 20 mg Filmtabletten [Concomitant]
     Dosage: ONE FILM-COATED TABLET DAILY
     Dates: start: 201712
  7. Velmetia 50mg/1000mg Filmtabletten [Concomitant]
     Dosage: 2 DOSAGE FORMS DAILY; 2 FILM-COATED TABLETS DAILY
     Dates: start: 201312
  8. ASPIRIN PLUS C [Concomitant]
     Active Substance: ASCORBIC ACID\ASPIRIN
     Dosage: 1 TABLET AS REQUIRED
     Dates: start: 201312, end: 202106
  9. ASPIRIN COMPLEX Beutel [Concomitant]
     Dosage: ONE SACHET
     Dates: start: 202108, end: 202108
  10. ACC AKUT 600 [Concomitant]
     Dosage: ONE PIECE AS REQUIRED
     Dates: start: 202106, end: 202111

REACTIONS (4)
  - Deafness neurosensory [Not Recovered/Not Resolved]
  - Hypothalamo-pituitary disorder [Not Recovered/Not Resolved]
  - Neuralgia [Not Recovered/Not Resolved]
  - Dyspepsia [Not Recovered/Not Resolved]

NARRATIVE: CASE EVENT DATE: 20171201
